FAERS Safety Report 9018243 (Version 1)
Quarter: 2013Q1

REPORT INFORMATION
  Report Type: Spontaneous
  Country: US (occurrence: None)
  Receive Date: 20130111
  Receipt Date: 20130111
  Transmission Date: 20140127
  Serious: Yes (Other)
  Sender: FDA-Public Use
  Company Number: None

PATIENT
  Sex: Female

DRUGS (3)
  1. PEGASYS 180MCG GENENTECH [Suspect]
     Dosage: 180MCG WEEKLY SUBQ
     Route: 058
     Dates: start: 20121106, end: 201301
  2. RIBAVIRIN TABLETS 200MG ZYDUS [Suspect]
     Dosage: 600MG BID ORAL
     Dates: start: 20121106, end: 201301
  3. INCIVEK [Concomitant]

REACTIONS (2)
  - Asthenia [None]
  - Abasia [None]
